FAERS Safety Report 15695701 (Version 1)
Quarter: 2018Q4

REPORT INFORMATION
  Report Type: Spontaneous
  Country: US (occurrence: US)
  Receive Date: 20181206
  Receipt Date: 20181206
  Transmission Date: 20190205
  Serious: No
  Sender: FDA-Public Use
  Company Number: US-TEVA-2018-US-981905

PATIENT
  Sex: Female

DRUGS (2)
  1. CLONAZEPAM ACTAVIS [Suspect]
     Active Substance: CLONAZEPAM
     Indication: PANIC DISORDER
  2. CLONAZEPAM ACTAVIS [Suspect]
     Active Substance: CLONAZEPAM
     Indication: ANXIETY
     Dosage: 0.75 MG IN THE MORNING AND 0.5 MG AT NIGHT
     Route: 048

REACTIONS (5)
  - Drug ineffective [Unknown]
  - Muscle tightness [Unknown]
  - Product substitution issue [Unknown]
  - Depressed mood [Unknown]
  - Anxiety [Unknown]
